FAERS Safety Report 4716440-7 (Version None)
Quarter: 2005Q3

REPORT INFORMATION
  Report Type: 
  Country: None (occurrence: None)
  Receive Date: 20050719
  Receipt Date: 20050707
  Transmission Date: 20060218
  Serious: Yes (Other)
  Sender: FDA-Public Use
  Company Number: US-JNJFOC-20050400463

PATIENT
  Sex: Female
  Weight: 42.18 kg

DRUGS (4)
  1. REMICADE [Suspect]
     Route: 042
  2. REMICADE [Suspect]
     Route: 042
  3. REMICADE [Suspect]
     Indication: RHEUMATOID ARTHRITIS
     Route: 042
  4. VITAMINS [Concomitant]

REACTIONS (9)
  - AMYOTROPHIC LATERAL SCLEROSIS [None]
  - DYSPNOEA EXERTIONAL [None]
  - HYPERTROPHY [None]
  - HYPERVENTILATION [None]
  - NASAL SINUS DRAINAGE [None]
  - RECTAL HAEMORRHAGE [None]
  - SPINAL COLUMN STENOSIS [None]
  - VISUAL DISTURBANCE [None]
  - WEIGHT DECREASED [None]
